FAERS Safety Report 4819132-9 (Version None)
Quarter: 2005Q4

REPORT INFORMATION
  Report Type: 
  Country: None (occurrence: None)
  Receive Date: 20051101
  Receipt Date: 20051014
  Transmission Date: 20060501
  Serious: Yes (Other)
  Sender: FDA-Public Use
  Company Number: 2005-0008837

PATIENT
  Age: 60 Year
  Sex: Male

DRUGS (2)
  1. HEPSERA [Suspect]
     Indication: HEPATITIS B
     Dosage: 10 MG, 1 IN 1 D;
  2. VIREAD [Suspect]
     Indication: HEPATITIS B
     Dosage: 300 MG

REACTIONS (1)
  - HBV DNA INCREASED [None]
